FAERS Safety Report 8252254-1 (Version None)
Quarter: 2012Q2

REPORT INFORMATION
  Report Type: 
  Country: None (occurrence: None)
  Receive Date: 20120402
  Receipt Date: 20110914
  Transmission Date: 20120825
  Serious: No
  Sender: FDA-Public Use
  Company Number: US-ABBOTT-11P-163-0854845-00

PATIENT
  Sex: Male
  Weight: 96.248 kg

DRUGS (6)
  1. PLAVIX [Concomitant]
     Indication: ANTICOAGULANT THERAPY
  2. LISINOPRIL [Concomitant]
     Indication: BLOOD PRESSURE
  3. GLYBURIDE [Concomitant]
     Indication: DIABETES MELLITUS
  4. CRESTOR [Concomitant]
     Indication: BLOOD DISORDER
  5. ANDROGEL [Suspect]
     Indication: BLOOD TESTOSTERONE DECREASED
     Route: 061
     Dates: start: 20110801
  6. TAMSULOSIN HCL [Concomitant]
     Indication: PROSTATIC DISORDER

REACTIONS (1)
  - DRUG INEFFECTIVE [None]
